FAERS Safety Report 9359985 (Version 1)
Quarter: 2013Q2

REPORT INFORMATION
  Report Type: Spontaneous
  Country: JP (occurrence: JP)
  Receive Date: 20130621
  Receipt Date: 20130621
  Transmission Date: 20140414
  Serious: Yes (Hospitalization, Disabling, Other)
  Sender: FDA-Public Use
  Company Number: JP-BAYER-JP-2006-038955

PATIENT
  Age: 49 Year
  Sex: Male

DRUGS (2)
  1. BETAFERON [Suspect]
     Indication: NEUROMYELITIS OPTICA
     Dosage: 8 MIU, EVERY 2D
     Route: 058
     Dates: start: 200208, end: 20020901
  2. BETAFERON [Suspect]
     Indication: NEUROMYELITIS OPTICA
     Dosage: 8 MIU, EVERY 2D
     Route: 058
     Dates: start: 200304, end: 2003

REACTIONS (7)
  - Neuromyelitis optica [Recovered/Resolved with Sequelae]
  - Multiple sclerosis relapse [Unknown]
  - Myelitis [Unknown]
  - Myelitis [Recovered/Resolved with Sequelae]
  - Hiccups [Unknown]
  - Depression [Unknown]
  - Off label use [None]
